FAERS Safety Report 7237699-0 (Version None)
Quarter: 2011Q1

REPORT INFORMATION
  Report Type: 
  Country: None (occurrence: None)
  Receive Date: 20110118
  Receipt Date: 20110110
  Transmission Date: 20110831
  Serious: Yes (Other)
  Sender: FDA-Public Use
  Company Number: TRP_07505_2011

PATIENT
  Sex: Female
  Weight: 34.0198 kg

DRUGS (2)
  1. RIBAVIRIN [Suspect]
     Indication: HEPATITIS
     Dates: start: 20090528
  2. PEG-INTRON [Suspect]
     Indication: HEPATITIS
     Dates: start: 20090528

REACTIONS (10)
  - DEPRESSION [None]
  - WEIGHT DECREASED [None]
  - SUICIDAL IDEATION [None]
  - DRUG INEFFECTIVE [None]
  - CONVULSION [None]
  - MALAISE [None]
  - NERVE INJURY [None]
  - HEAD INJURY [None]
  - FALL [None]
  - PNEUMONIA [None]
